FAERS Safety Report 9785685 (Version 1)
Quarter: 2013Q4

REPORT INFORMATION
  Report Type: Spontaneous
  Country: US (occurrence: None)
  Receive Date: 20131226
  Receipt Date: 20131226
  Transmission Date: 20140711
  Serious: Yes (Life-Threatening, Disabling, Other)
  Sender: FDA-Public Use
  Company Number: None

PATIENT
  Age: 20 Year
  Sex: Male
  Weight: 77.11 kg

DRUGS (1)
  1. ZOLOFT [Suspect]
     Indication: MENTAL DISORDER
     Route: 048
     Dates: start: 199710, end: 2008

REACTIONS (2)
  - Hallucination, auditory [None]
  - Paraesthesia [None]
